FAERS Safety Report 9580185 (Version 3)
Quarter: 2013Q4

REPORT INFORMATION
  Report Type: Spontaneous
  Country: US (occurrence: US)
  Receive Date: 20131002
  Receipt Date: 20131029
  Transmission Date: 20140711
  Serious: No
  Sender: FDA-Public Use
  Company Number: US-009507513-1309USA009426

PATIENT
  Age: 86 Year
  Sex: Male

DRUGS (3)
  1. PROVENTIL [Suspect]
     Indication: CHRONIC OBSTRUCTIVE PULMONARY DISEASE
     Dosage: 2 PUFFS 3 TIMES DAILY
     Route: 055
     Dates: start: 201307
  2. FLUTICASONE [Concomitant]
  3. VENTOLIN (ALBUTEROL SULFATE) [Concomitant]
     Dosage: UNK
     Route: 055
     Dates: start: 20130917

REACTIONS (3)
  - Dyspnoea [Recovered/Resolved]
  - Product quality issue [Unknown]
  - Drug dose omission [Unknown]
